FAERS Safety Report 5027559-8 (Version None)
Quarter: 2006Q2

REPORT INFORMATION
  Report Type: 
  Country: None (occurrence: None)
  Receive Date: 20060616
  Receipt Date: 20060517
  Transmission Date: 20061013
  Serious: Yes (Hospitalization)
  Sender: FDA-Public Use
  Company Number: PHNU2006DE02018

PATIENT
  Age: 62 Year
  Sex: Male

DRUGS (15)
  1. CLOZAPINE [Suspect]
     Indication: PSYCHOTIC DISORDER
     Dosage: 50 MG/DAY
     Route: 048
     Dates: start: 20050101
  2. PANTOZOL [Concomitant]
     Dosage: 40 MG/DAY
  3. PREDNISONE [Concomitant]
     Indication: NON-HODGKIN'S LYMPHOMA STAGE IV
     Dosage: 100 MG/DAY
     Dates: start: 20060427, end: 20060502
  4. RITUXIMAB [Concomitant]
     Indication: NON-HODGKIN'S LYMPHOMA STAGE IV
     Dosage: 375 MG/M2/DAY
     Dates: start: 20060426, end: 20060426
  5. CYCLOPHOSPHAMIDE [Concomitant]
     Indication: NON-HODGKIN'S LYMPHOMA STAGE IV
     Dosage: 750 MG/M2/DAY
     Dates: start: 20060427, end: 20060427
  6. CAELYX [Concomitant]
     Indication: NON-HODGKIN'S LYMPHOMA STAGE IV
     Dosage: 30 MG/M2/DAY
     Dates: start: 20060427, end: 20060427
  7. VINCRISTINE [Concomitant]
     Indication: NON-HODGKIN'S LYMPHOMA STAGE IV
     Dosage: 1 MG/DAY
     Dates: start: 20060427, end: 20060427
  8. SIFROL [Concomitant]
     Indication: PARKINSON'S DISEASE
     Dosage: 1.4 MG/DAY
  9. CARBIDOPA + LEVODOPA [Concomitant]
     Indication: PARKINSON'S DISEASE
     Dosage: 700 MG/DAY
  10. XANEF [Concomitant]
     Indication: HYPERTENSION
     Dosage: 5 MG/DAY
  11. CONCOR [Concomitant]
     Indication: HYPERTENSION
     Dosage: 5 MG/DAY
  12. ACETYLSALICYLIC ACID SRT [Concomitant]
     Dosage: 100 MG/DAY
  13. ESIDRIX [Concomitant]
     Indication: HYPERTENSION
     Dosage: 12.5 MG/DAY
  14. ALLOPURINOL [Concomitant]
     Dosage: 300 MG/DAY
  15. FRAGMIN P [Concomitant]

REACTIONS (13)
  - ANGINA PECTORIS [None]
  - BLOOD ALKALINE PHOSPHATASE INCREASED [None]
  - ELECTROCARDIOGRAM ST SEGMENT ELEVATION [None]
  - GAMMA-GLUTAMYLTRANSFERASE INCREASED [None]
  - HYPERTENSION [None]
  - LYMPHADENOPATHY [None]
  - METASTASES TO LIVER [None]
  - METASTASES TO SPLEEN [None]
  - METASTASIS [None]
  - NON-HODGKIN'S LYMPHOMA STAGE IV [None]
  - PATHOLOGICAL FRACTURE [None]
  - TRANSAMINASES INCREASED [None]
  - VENTRICULAR HYPERTROPHY [None]
